FAERS Safety Report 6965510-1 (Version None)
Quarter: 2010Q3

REPORT INFORMATION
  Report Type: 
  Country: None (occurrence: None)
  Receive Date: 20100903
  Receipt Date: 20100826
  Transmission Date: 20110219
  Serious: Yes (Hospitalization)
  Sender: FDA-Public Use
  Company Number: FR-PFIZER INC-2010107470

PATIENT
  Age: 82 Year
  Sex: Female

DRUGS (5)
  1. TAHOR [Suspect]
     Dosage: UNK
     Route: 048
     Dates: end: 20100112
  2. ARICEPT [Suspect]
     Indication: DEMENTIA ALZHEIMER'S TYPE
     Dosage: UNK
     Route: 048
     Dates: end: 20100112
  3. BISOPROLOL FUMARATE [Suspect]
     Dosage: UNK
     Route: 048
     Dates: end: 20100112
  4. TRIATEC [Suspect]
     Dosage: UNK
     Route: 048
     Dates: end: 20100112
  5. KARDEGIC [Concomitant]
     Indication: MYOCARDIAL ISCHAEMIA
     Dosage: UNK
     Route: 048

REACTIONS (1)
  - BRADYCARDIA [None]
